FAERS Safety Report 8073485-X (Version None)
Quarter: 2012Q1

REPORT INFORMATION
  Report Type: 
  Country: None (occurrence: None)
  Receive Date: 20120126
  Receipt Date: 20120126
  Transmission Date: 20120608
  Serious: No
  Sender: FDA-Public Use
  Company Number: None

PATIENT
  Age: 49 Year
  Sex: Male
  Weight: 99.79 kg

DRUGS (1)
  1. ULORIC [Suspect]
     Indication: PROPHYLAXIS
     Dosage: 40 MG
     Route: 048
     Dates: start: 20111001, end: 20120120

REACTIONS (2)
  - POLLAKIURIA [None]
  - RENAL IMPAIRMENT [None]
